FAERS Safety Report 23848130 (Version 1)
Quarter: 2024Q2

REPORT INFORMATION
  Report Type: Other
  Country: US (occurrence: None)
  Receive Date: 20240513
  Receipt Date: 20240513
  Transmission Date: 20240716
  Serious: Yes (Other)
  Sender: FDA-Public Use
  Company Number: US-ROCHE-3558832

PATIENT

DRUGS (1)
  1. XOLAIR [Suspect]
     Active Substance: OMALIZUMAB
     Indication: Product used for unknown indication
     Route: 065

REACTIONS (6)
  - Urticaria [Unknown]
  - Vision blurred [Unknown]
  - Headache [Unknown]
  - Head discomfort [Unknown]
  - Pelvic floor dysfunction [Unknown]
  - Neoplasm malignant [Unknown]
